FAERS Safety Report 10047011 (Version 4)
Quarter: 2014Q2

REPORT INFORMATION
  Report Type: Report from Study
  Country: KR (occurrence: KR)
  Receive Date: 20140331
  Receipt Date: 20140627
  Transmission Date: 20141212
  Serious: Yes (Other)
  Sender: FDA-Public Use
  Company Number: KR-JNJFOC-20140304543

PATIENT
  Age: 45 Year
  Sex: Male
  Weight: 67 kg

DRUGS (13)
  1. STELARA [Suspect]
     Indication: PSORIASIS
     Route: 058
     Dates: start: 20131223, end: 20140401
  2. STELARA [Suspect]
     Indication: PSORIASIS
     Route: 058
     Dates: start: 20131223, end: 20140401
  3. EBASTEL [Concomitant]
     Indication: PSORIASIS
     Dosage: 2 CAPSULES
     Route: 048
     Dates: start: 20131014, end: 20140123
  4. DAIVOBET [Concomitant]
     Indication: PSORIASIS
     Route: 061
     Dates: start: 20131111
  5. DAIVOBET [Concomitant]
     Indication: PSORIASIS
     Route: 061
     Dates: start: 20130422
  6. REMICUT [Concomitant]
     Indication: PSORIASIS
     Route: 048
     Dates: start: 20131223
  7. CIPOL-N [Concomitant]
     Indication: PSORIASIS
     Route: 048
     Dates: start: 20130123, end: 20140310
  8. CIPOL-N [Concomitant]
     Indication: PSORIASIS
     Route: 048
     Dates: start: 20140310
  9. CIPOL-N [Concomitant]
     Indication: PSORIASIS
     Route: 048
     Dates: start: 20130422
  10. METHOTREXATE [Concomitant]
     Indication: PSORIASIS
     Dosage: FOR 7 WEEKS
     Route: 048
     Dates: start: 20130610
  11. AZATHIOPRINE [Concomitant]
     Indication: PSORIASIS
     Dosage: FOR 21 DAYS
     Route: 048
     Dates: start: 20130610
  12. VYTORIN [Concomitant]
     Indication: HYPERTRIGLYCERIDAEMIA
     Dosage: FOR 6 MONTHS
     Route: 048
     Dates: start: 20130610
  13. ALLOPURINOL [Concomitant]
     Indication: HYPERURICAEMIA
     Dosage: FOR 3 MONTHS
     Route: 048
     Dates: start: 20130722

REACTIONS (1)
  - Pustular psoriasis [Recovered/Resolved]
